FAERS Safety Report 16944901 (Version 4)
Quarter: 2023Q2

REPORT INFORMATION
  Report Type: Spontaneous
  Country: US (occurrence: US)
  Receive Date: 20191022
  Receipt Date: 20230428
  Transmission Date: 20230722
  Serious: Yes (Hospitalization, Other)
  Sender: FDA-Public Use
  Company Number: US-PFIZER INC-2019341323

PATIENT
  Age: 94 Year
  Sex: Male
  Weight: 81.63 kg

DRUGS (4)
  1. VYNDAQEL [Suspect]
     Active Substance: TAFAMIDIS MEGLUMINE
     Indication: Cardiac amyloidosis
     Dosage: 80 MG, DAILY
     Route: 048
  2. VYNDAQEL [Suspect]
     Active Substance: TAFAMIDIS MEGLUMINE
     Indication: Protein total increased
     Dosage: 60 MG, DAILY [3-20 MG A DAY]
     Route: 048
     Dates: start: 20190726
  3. SOTALOL [Concomitant]
     Active Substance: SOTALOL
     Dosage: UNK, 80: (1/2 AM-1/2PM ]
  4. ELIQUIS [Concomitant]
     Active Substance: APIXABAN
     Dosage: UNK (1/2   + 1/2 MON JUST 1/2 , CUTTING TO 30MG AM, 30MG PM WATER PILL)

REACTIONS (5)
  - Angina pectoris [Not Recovered/Not Resolved]
  - Dysstasia [Not Recovered/Not Resolved]
  - Arteriosclerosis [Not Recovered/Not Resolved]
  - Cerebrovascular accident [Recovered/Resolved]
  - Intentional product use issue [Unknown]

NARRATIVE: CASE EVENT DATE: 20191001
